FAERS Safety Report 10204575 (Version 1)
Quarter: 2014Q2

REPORT INFORMATION
  Report Type: Spontaneous
  Country: US (occurrence: US)
  Receive Date: 20140529
  Receipt Date: 20140529
  Transmission Date: 20141212
  Serious: No
  Sender: FDA-Public Use
  Company Number: US-MYLANLABS-2013S1011225

PATIENT
  Age: 76 Year
  Sex: Female
  Weight: 69.4 kg

DRUGS (2)
  1. ALBUTEROL SULFATE INHALATION SOLUTION [Suspect]
     Indication: ASTHMA
     Route: 055
     Dates: start: 20130520
  2. ALBUTEROL INHALER [Concomitant]
     Indication: ASTHMA

REACTIONS (4)
  - Drug ineffective [Not Recovered/Not Resolved]
  - Dyspnoea [Not Recovered/Not Resolved]
  - Hypotension [Not Recovered/Not Resolved]
  - Expired product administered [Not Recovered/Not Resolved]
